FAERS Safety Report 9638951 (Version 2)
Quarter: 2013Q4

REPORT INFORMATION
  Report Type: Spontaneous
  Country: US (occurrence: US)
  Receive Date: 20131022
  Receipt Date: 20131022
  Transmission Date: 20140711
  Serious: No
  Sender: FDA-Public Use
  Company Number: US-BRISTOL-MYERS SQUIBB COMPANY-19127125

PATIENT
  Age: 93 Year
  Sex: Female

DRUGS (7)
  1. ELIQUIS [Suspect]
     Indication: ATRIAL FIBRILLATION
     Route: 048
     Dates: start: 20130407, end: 20130410
  2. SIMVASTATIN [Concomitant]
     Route: 048
  3. COREG [Concomitant]
  4. LASIX [Concomitant]
     Route: 048
  5. LOSARTAN [Concomitant]
  6. PRILOSEC [Concomitant]
     Route: 048
  7. ALBUTEROL INHALER [Concomitant]
     Route: 045

REACTIONS (2)
  - Malaise [Recovering/Resolving]
  - Feeling abnormal [Recovering/Resolving]
